FAERS Safety Report 4724149-9 (Version None)
Quarter: 2005Q3

REPORT INFORMATION
  Report Type: 
  Country: None (occurrence: None)
  Receive Date: 20050722
  Receipt Date: 20050712
  Transmission Date: 20060218
  Serious: Yes (Hospitalization)
  Sender: FDA-Public Use
  Company Number: 216009

PATIENT
  Age: 55 Year
  Sex: Female
  Weight: 46 kg

DRUGS (5)
  1. MABTHERA(RITUXIMAB CONC FOR SOLUTION FOR INFUSION [Suspect]
     Indication: NON-HODGKIN'S LYMPHOMA
     Dosage: 341 MG, INTRAVENOUS
     Route: 042
     Dates: start: 20041215, end: 20041215
  2. ZEVALIN [Suspect]
     Indication: NON-HODGKIN'S LYMPHOMA
     Dosage: 18.4 MCI, QD, INTRAVENOUS
     Route: 042
     Dates: start: 20041221, end: 20041221
  3. ZEVALIN [Concomitant]
  4. BASEN (VOGLIBOSE) [Concomitant]
  5. GLYBURIDE [Concomitant]

REACTIONS (4)
  - BONE MARROW DEPRESSION [None]
  - NEUTROPHIL PERCENTAGE DECREASED [None]
  - NEUTROPHIL PERCENTAGE INCREASED [None]
  - WHITE BLOOD CELL COUNT DECREASED [None]
